FAERS Safety Report 10018930 (Version 1)
Quarter: 2014Q1

REPORT INFORMATION
  Report Type: Spontaneous
  Country: US (occurrence: US)
  Receive Date: 20140318
  Receipt Date: 20140318
  Transmission Date: 20141002
  Serious: Yes (Hospitalization)
  Sender: FDA-Public Use
  Company Number: US-GLAXOSMITHKLINE-A1064326A

PATIENT
  Age: 57 Year
  Sex: Female

DRUGS (10)
  1. ADVAIR [Suspect]
     Indication: CHRONIC OBSTRUCTIVE PULMONARY DISEASE
     Dosage: 1PUFF TWICE PER DAY
     Route: 055
     Dates: start: 2002
  2. HCTZ [Concomitant]
  3. PAXIL [Concomitant]
  4. THEOPHYLLINE [Concomitant]
  5. NEURONTIN [Concomitant]
  6. ATIVAN [Concomitant]
  7. METOPROLOL [Concomitant]
  8. NEBULIZER [Concomitant]
  9. PRO-AIR [Concomitant]
  10. GLUCAGON [Concomitant]

REACTIONS (5)
  - Loss of consciousness [Unknown]
  - Blood glucose increased [Unknown]
  - Blood glucose decreased [Unknown]
  - Hypoglycaemia [Unknown]
  - Blood glucose fluctuation [Unknown]
